FAERS Safety Report 19010821 (Version 1)
Quarter: 2021Q1

REPORT INFORMATION
  Report Type: Spontaneous
  Country: US (occurrence: US)
  Receive Date: 20210316
  Receipt Date: 20210316
  Transmission Date: 20210420
  Serious: Yes (Hospitalization, Other)
  Sender: FDA-Public Use
  Company Number: ALC2021US001811

PATIENT
  Sex: Female
  Weight: 70.37 kg

DRUGS (15)
  1. AVASTIN [Suspect]
     Active Substance: BEVACIZUMAB
     Dosage: UNK
     Route: 065
     Dates: start: 2018
  2. VITAMIN D NOS [Concomitant]
     Active Substance: VITAMIN D NOS
     Route: 065
  3. BREO ELLIPTA [Concomitant]
     Active Substance: FLUTICASONE FUROATE\VILANTEROL TRIFENATATE
     Indication: PRODUCT USED FOR UNKNOWN INDICATION
     Dosage: UNK
     Route: 065
  4. EYLEA [Concomitant]
     Active Substance: AFLIBERCEPT
     Indication: PRODUCT USED FOR UNKNOWN INDICATION
     Route: 065
  5. LUCENTIS [Suspect]
     Active Substance: RANIBIZUMAB
     Indication: CHOROIDAL NEOVASCULARISATION
     Dosage: UNK
     Route: 031
  6. LUCENTIS [Suspect]
     Active Substance: RANIBIZUMAB
     Dosage: 0.5 MG, QMO
     Route: 031
  7. LISINOPRIL. [Concomitant]
     Active Substance: LISINOPRIL
     Indication: PRODUCT USED FOR UNKNOWN INDICATION
     Dosage: UNK
     Route: 065
  8. JANUMET [Concomitant]
     Active Substance: METFORMIN HYDROCHLORIDE\SITAGLIPTIN PHOSPHATE
     Indication: PRODUCT USED FOR UNKNOWN INDICATION
     Dosage: 500/1000 MG
     Route: 065
  9. ASPIRIN (E.C.) [Concomitant]
     Active Substance: ASPIRIN
     Indication: PRODUCT USED FOR UNKNOWN INDICATION
     Route: 065
  10. LUCENTIS [Suspect]
     Active Substance: RANIBIZUMAB
     Indication: NEOVASCULAR AGE-RELATED MACULAR DEGENERATION
     Dosage: UNK UNK, QMO
     Route: 031
  11. ATORVASTATIN [Concomitant]
     Active Substance: ATORVASTATIN
     Indication: PRODUCT USED FOR UNKNOWN INDICATION
     Route: 065
  12. HYDROCHLOROTHIAZIDE. [Concomitant]
     Active Substance: HYDROCHLOROTHIAZIDE
     Indication: PRODUCT USED FOR UNKNOWN INDICATION
     Dosage: UNK
     Route: 065
  13. BETADINE [Suspect]
     Active Substance: POVIDONE-IODINE
     Indication: PRODUCT USED FOR UNKNOWN INDICATION
     Dosage: UNK
     Route: 065
  14. ICAPS AREDS 2 [Suspect]
     Active Substance: MINERALS\VITAMINS
     Indication: PRODUCT USED FOR UNKNOWN INDICATION
     Route: 048
  15. AVASTIN [Suspect]
     Active Substance: BEVACIZUMAB
     Indication: NEOVASCULAR AGE-RELATED MACULAR DEGENERATION
     Dosage: UNK UNK, QMO(RIGHT EYE)
     Route: 065
     Dates: start: 201010

REACTIONS (14)
  - Off label use [Unknown]
  - Weight decreased [Not Recovered/Not Resolved]
  - Intentional product use issue [Unknown]
  - Amnesia [Unknown]
  - Abdominal discomfort [Recovered/Resolved]
  - Eyelid pain [Not Recovered/Not Resolved]
  - Eye irritation [Not Recovered/Not Resolved]
  - Macular degeneration [Not Recovered/Not Resolved]
  - Rhinorrhoea [Not Recovered/Not Resolved]
  - Lacrimation increased [Not Recovered/Not Resolved]
  - Drug ineffective [Unknown]
  - Uterine prolapse [Not Recovered/Not Resolved]
  - Cataract [Not Recovered/Not Resolved]
  - Visual impairment [Not Recovered/Not Resolved]

NARRATIVE: CASE EVENT DATE: 2014
